FAERS Safety Report 5924220-X (Version None)
Quarter: 2008Q4

REPORT INFORMATION
  Report Type: 
  Country: None (occurrence: None)
  Receive Date: 20081020
  Receipt Date: 20081008
  Transmission Date: 20090506
  Serious: Yes (Other)
  Sender: FDA-Public Use
  Company Number: JP-PFIZER INC-2008085398

PATIENT
  Age: 21 Year
  Sex: Female

DRUGS (6)
  1. IDAMYCIN [Suspect]
     Indication: ACUTE PROMYELOCYTIC LEUKAEMIA
     Dosage: DAILY DOSE:12MG/M2
     Route: 042
  2. DAUNORUBICIN HCL [Suspect]
     Indication: ACUTE PROMYELOCYTIC LEUKAEMIA
     Dosage: DAILY DOSE:50MG/M2
     Route: 042
  3. CYTARABINE [Suspect]
     Indication: ACUTE PROMYELOCYTIC LEUKAEMIA
     Dosage: DAILY DOSE:100MG/M2
     Route: 042
  4. CYTARABINE [Suspect]
     Dosage: DAILY DOSE:200MG/M2
     Route: 042
  5. MITOXANTRONE [Suspect]
     Dosage: DAILY DOSE:7MG/M2
  6. RETINOIC ACID [Suspect]
     Indication: ACUTE PROMYELOCYTIC LEUKAEMIA
     Dosage: DAILY DOSE:45MG/M2
     Route: 048

REACTIONS (4)
  - CARDIAC FAILURE [None]
  - HYPERCALCAEMIA [None]
  - THIRST [None]
  - VOMITING [None]
